FAERS Safety Report 7686669 (Version 2)
Quarter: 2013Q4

REPORT INFORMATION
  Report Type: Spontaneous
  Country: US (occurrence: US)
  Receive Date: 20101130
  Receipt Date: 20131231
  Transmission Date: 20140711
  Serious: Yes (Hospitalization)
  Sender: FDA-Public Use
  Company Number: US-RANBAXY-2010US-39610

PATIENT
  Age: 25 Year
  Sex: Female

DRUGS (1)
  1. AMLODIPINE [Suspect]
     Indication: PRODUCT USED FOR UNKNOWN INDICATION
     Dosage: 10 MG, 30 TABLETS
     Route: 048

REACTIONS (2)
  - Overdose [Unknown]
  - Shock [Recovering/Resolving]
